FAERS Safety Report 7206502-7 (Version None)
Quarter: 2011Q1

REPORT INFORMATION
  Report Type: 
  Country: None (occurrence: None)
  Receive Date: 20110103
  Receipt Date: 20101221
  Transmission Date: 20110831
  Serious: Yes (Hospitalization)
  Sender: FDA-Public Use
  Company Number: JP-SANOFI-AVENTIS-2010SA027701

PATIENT
  Age: 46 Year
  Sex: Male

DRUGS (17)
  1. PLATIBIT [Concomitant]
     Indication: OSTEOPOROSIS
     Route: 048
  2. VIBRAMYCIN TABS [Concomitant]
     Indication: PROPHYLAXIS
     Route: 048
  3. FOLIAMIN [Concomitant]
     Indication: PROPHYLAXIS
     Route: 048
  4. ARAVA [Suspect]
     Indication: RHEUMATOID ARTHRITIS
     Route: 048
     Dates: start: 20090808, end: 20091127
  5. QUESTRAN [Suspect]
     Indication: DRUG DETOXIFICATION
     Route: 048
     Dates: start: 20091128, end: 20091130
  6. CYTOTEC [Concomitant]
     Indication: GASTRIC ULCER
     Route: 048
  7. PREDNISOLONE [Concomitant]
     Indication: RHEUMATOID ARTHRITIS
     Route: 048
  8. ALL OTHER THERAPEUTIC PRODUCTS [Concomitant]
     Indication: GASTRIC ULCER
     Route: 048
  9. METHOTREXATE [Concomitant]
     Indication: RHEUMATOID ARTHRITIS
     Dosage: 20 MG ON SATURDAYS AND SUNDAYS
     Route: 048
     Dates: start: 20090905, end: 20091127
  10. ETANERCEPT [Concomitant]
     Indication: RHEUMATOID ARTHRITIS
     Route: 058
  11. ISCOTIN [Concomitant]
     Route: 048
  12. NEUROVITAN [Concomitant]
     Indication: HYPOVITAMINOSIS
     Route: 048
  13. BACTRIM [Concomitant]
     Indication: PROPHYLAXIS
     Dosage: 3 TABLETS/DAY ON MONDAYS AND FRIDAYS.
     Route: 048
  14. METHOTREXATE [Concomitant]
     Dosage: 20 MG ON SATURDAYS AND SUNDAYS
     Route: 048
     Dates: start: 20091202
  15. FAMOTIDINE [Concomitant]
     Indication: GASTRIC ULCER
     Route: 048
  16. LIPITOR [Concomitant]
     Indication: HYPERLIPIDAEMIA
     Route: 048
  17. ALFAROL [Concomitant]
     Indication: OSTEOPOROSIS
     Route: 048
     Dates: start: 20091128

REACTIONS (7)
  - DIARRHOEA [None]
  - ASPARTATE AMINOTRANSFERASE INCREASED [None]
  - GAMMA-GLUTAMYLTRANSFERASE INCREASED [None]
  - HISTIOCYTOSIS HAEMATOPHAGIC [None]
  - GASTROENTERITIS [None]
  - DECREASED APPETITE [None]
  - ALANINE AMINOTRANSFERASE INCREASED [None]
